FAERS Safety Report 10891667 (Version 2)
Quarter: 2015Q2

REPORT INFORMATION
  Report Type: Report from Study
  Country: CA (occurrence: CA)
  Receive Date: 20150306
  Receipt Date: 20150521
  Transmission Date: 20150821
  Serious: Yes (Life-Threatening, Hospitalization)
  Sender: FDA-Public Use
  Company Number: PHHY2015CA026911

PATIENT
  Age: 64 Year
  Sex: Male

DRUGS (4)
  1. CLOZARIL [Suspect]
     Active Substance: CLOZAPINE
     Indication: SCHIZOPHRENIA
     Dosage: UNK
     Route: 048
     Dates: start: 1995
  2. CLOZARIL [Suspect]
     Active Substance: CLOZAPINE
     Dosage: 350 OT, QD
     Route: 048
     Dates: start: 20060307, end: 201503
  3. KENDURAL [Concomitant]
     Indication: PRODUCT USED FOR UNKNOWN INDICATION
     Dosage: 5 MG, QD
     Route: 065
  4. CITALOPRAM [Concomitant]
     Active Substance: CITALOPRAM HYDROBROMIDE
     Indication: PRODUCT USED FOR UNKNOWN INDICATION
     Dosage: 10 MG, QD
     Route: 065

REACTIONS (2)
  - Loss of consciousness [Recovered/Resolved]
  - Apparent life threatening event [Recovered/Resolved]

NARRATIVE: CASE EVENT DATE: 20150228
